FAERS Safety Report 5595119-6 (Version None)
Quarter: 2008Q1

REPORT INFORMATION
  Report Type: 
  Country: None (occurrence: None)
  Receive Date: 20080117
  Receipt Date: 20070612
  Transmission Date: 20080703
  Serious: No
  Sender: FDA-Public Use
  Company Number: US-BOEHRINGER INGELHEIM PHARMACEUTICALS, INC.-2007-BP-09039BP

PATIENT
  Age: 61 Year
  Sex: Male

DRUGS (5)
  1. FLOMAX [Suspect]
     Indication: URINARY TRACT DISORDER
     Route: 048
     Dates: start: 20060101
  2. VIAGRA [Concomitant]
  3. TOPROL-XL [Concomitant]
     Indication: HYPERTENSION
  4. VALIUM [Concomitant]
     Indication: ANXIETY
  5. LASIX [Concomitant]
     Indication: HYPERTENSION

REACTIONS (2)
  - RETROGRADE EJACULATION [None]
  - SEXUAL DYSFUNCTION [None]
